FAERS Safety Report 4537035-4 (Version None)
Quarter: 2004Q4

REPORT INFORMATION
  Report Type: 
  Country: None (occurrence: None)
  Receive Date: 20041214
  Receipt Date: 20041005
  Transmission Date: 20050328
  Serious: No
  Sender: FDA-Public Use
  Company Number: 2004238209US

PATIENT
  Age: 64 Year
  Sex: Female
  Weight: 90.7 kg

DRUGS (9)
  1. BEXTRA [Suspect]
     Indication: OSTEOARTHRITIS
     Dosage: 10 MG, QD, UNK
     Route: 065
     Dates: start: 20040101, end: 20041001
  2. DARVOCET-N 100 [Concomitant]
  3. NEURONTIN [Concomitant]
  4. ZOLOFT [Concomitant]
  5. BUSPAR [Concomitant]
  6. ELAVIL [Concomitant]
  7. LISINOPRIL [Concomitant]
  8. HYDROCHLOROTHIAZIDE [Concomitant]
  9. CLONIDINE [Concomitant]

REACTIONS (2)
  - CONDITION AGGRAVATED [None]
  - OSTEOARTHRITIS [None]
